FAERS Safety Report 13144300 (Version 6)
Quarter: 2017Q3

REPORT INFORMATION
  Report Type: Report from Study
  Country: DE (occurrence: DE)
  Receive Date: 20170124
  Receipt Date: 20170829
  Transmission Date: 20171127
  Serious: Yes (Hospitalization, Other)
  Sender: FDA-Public Use
  Company Number: DE-BRISTOL-MYERS SQUIBB COMPANY-BMS-2017-001829

PATIENT
  Age: 58 Year
  Sex: Female

DRUGS (1)
  1. ABATACEPT [Suspect]
     Active Substance: ABATACEPT
     Indication: RHEUMATOID ARTHRITIS
     Dosage: 125 MG, QWK
     Route: 058
     Dates: end: 20170531

REACTIONS (14)
  - Pain [Unknown]
  - Urosepsis [Recovered/Resolved]
  - Cervicobrachial syndrome [Unknown]
  - Musculoskeletal stiffness [Unknown]
  - Sepsis [Recovered/Resolved]
  - Cardiac failure [Recovered/Resolved]
  - Microcytic anaemia [Unknown]
  - Erysipelas [Recovered/Resolved]
  - Rheumatoid arthritis [Recovered/Resolved]
  - Conjunctivitis [Unknown]
  - Back pain [Unknown]
  - Off label use [Unknown]
  - Pain in extremity [Unknown]
  - Dry skin [Unknown]

NARRATIVE: CASE EVENT DATE: 20160915
